FAERS Safety Report 11776484 (Version 1)
Quarter: 2015Q4

REPORT INFORMATION
  Report Type: Spontaneous
  Country: GB (occurrence: GB)
  Receive Date: 20151125
  Receipt Date: 20151125
  Transmission Date: 20160304
  Serious: Yes (Hospitalization)
  Sender: FDA-Public Use
  Company Number: GB-AUROBINDO-AUR-APL-2015-10329

PATIENT
  Age: 22 Year
  Sex: Female

DRUGS (6)
  1. PARACETAMOL [Concomitant]
     Active Substance: ACETAMINOPHEN
     Indication: PRODUCT USED FOR UNKNOWN INDICATION
     Dosage: 1 G, FOUR TIMES/DAY
     Route: 065
  2. PHENYTOIN 100MG [Suspect]
     Active Substance: PHENYTOIN
     Indication: EPILEPSY
     Dosage: 100 MG
     Route: 048
     Dates: start: 20151019, end: 20151028
  3. AMITRIPTYLIN [Concomitant]
     Active Substance: AMITRIPTYLINE
     Indication: PRODUCT USED FOR UNKNOWN INDICATION
     Dosage: 40 MG, ONCE A DAY, IN THE EVENING
     Route: 065
  4. WARFARIN [Concomitant]
     Active Substance: WARFARIN
     Indication: PRODUCT USED FOR UNKNOWN INDICATION
     Route: 065
  5. ACETAZOLAMIDE. [Concomitant]
     Active Substance: ACETAZOLAMIDE
     Indication: PRODUCT USED FOR UNKNOWN INDICATION
     Dosage: 500 MG, TWO TIMES A DAY
     Route: 065
  6. APIXABAN [Concomitant]
     Active Substance: APIXABAN
     Indication: PRODUCT USED FOR UNKNOWN INDICATION
     Route: 065

REACTIONS (22)
  - Musculoskeletal stiffness [Unknown]
  - Chromaturia [Unknown]
  - Liver function test abnormal [Not Recovered/Not Resolved]
  - Abdominal pain upper [Unknown]
  - VIth nerve paralysis [Unknown]
  - Type IV hypersensitivity reaction [Unknown]
  - Headache [Recovering/Resolving]
  - Urine odour abnormal [Unknown]
  - Cerebral haemorrhage [Unknown]
  - Heart rate increased [Unknown]
  - Cough [Recovered/Resolved]
  - Pleuritic pain [Unknown]
  - Nausea [Unknown]
  - VIIth nerve paralysis [Unknown]
  - Pyrexia [Unknown]
  - Photophobia [Unknown]
  - Pain [Unknown]
  - Epilepsy [Unknown]
  - Intracranial venous sinus thrombosis [Unknown]
  - Oropharyngeal pain [Unknown]
  - Rash maculo-papular [Recovering/Resolving]
  - Body temperature increased [Unknown]

NARRATIVE: CASE EVENT DATE: 201510
